FAERS Safety Report 8789737 (Version 1)
Quarter: 2012Q4

REPORT INFORMATION
  Report Type: Spontaneous
  Country: US (occurrence: None)
  Receive Date: 20120905
  Receipt Date: 20120905
  Transmission Date: 20130627
  Serious: Yes (Congenital Anomaly)
  Sender: FDA-Public Use
  Company Number: KV201200175

PATIENT

DRUGS (2)
  1. MAKENA [Suspect]
     Indication: DRUG EXPOSURE DURING PREGNANCY
     Dates: start: 20120725, end: 2012
  2. MAKENA [Suspect]
     Indication: MATERNAL EXPOSURE DURING PREGNANCY
     Dates: start: 20120725, end: 2012

REACTIONS (4)
  - Congenital hydrocephalus [None]
  - Trisomy 21 [None]
  - Atrioventricular septal defect [None]
  - Maternal drugs affecting foetus [None]
